FAERS Safety Report 9505393 (Version 1)
Quarter: 2013Q1

REPORT INFORMATION
  Report Type: Spontaneous
  Country: US (occurrence: None)
  Receive Date: 20130220
  Receipt Date: 20130220
  Transmission Date: 20140127
  Serious: No
  Sender: FDA-Public Use
  Company Number: 1000040560

PATIENT
  Age: 65 Year
  Sex: Female

DRUGS (5)
  1. VIIBYRD [Suspect]
     Indication: DEPRESSION
     Dosage: 10 MG (10 MG, 1 IN 1 D), ORAL
     Route: 048
     Dates: start: 201210
  2. VIIBYRD [Suspect]
     Indication: DEPRESSION
     Dosage: 40 MG (40 MG, 1 IN 1 D), ORAL
     Route: 048
     Dates: end: 201211
  3. METOPROLOL (METOPROLOL) (METOPROLOL) [Concomitant]
  4. LISINOPRIL (LISINOPRIL) (LISINOPRIL) [Concomitant]
  5. AMLODIPINEI (AMLODIPINE) [Concomitant]

REACTIONS (3)
  - Palpitations [None]
  - Nausea [None]
  - Anxiety [None]
